FAERS Safety Report 4307388-0 (Version None)
Quarter: 2004Q1

REPORT INFORMATION
  Report Type: 
  Country: None (occurrence: None)
  Receive Date: 20040226
  Receipt Date: 20040213
  Transmission Date: 20041129
  Serious: Yes (Other)
  Sender: FDA-Public Use
  Company Number: 2004009825

PATIENT
  Age: 36 Year
  Sex: Male
  Weight: 81.6475 kg

DRUGS (3)
  1. PHENYTOIN [Suspect]
     Indication: BRAIN NEOPLASM
     Dosage: ORAL
     Route: 048
     Dates: start: 19680101, end: 19680101
  2. ALL OTHER THERAPEUTIC PRODUCTS [Concomitant]
  3. THYROID TAB [Concomitant]

REACTIONS (1)
  - CONVULSION [None]
